FAERS Safety Report 9936582 (Version 1)
Quarter: 2014Q1

REPORT INFORMATION
  Report Type: Spontaneous
  Country: US (occurrence: US)
  Receive Date: 20140228
  Receipt Date: 20140228
  Transmission Date: 20141002
  Serious: Yes (Other)
  Sender: FDA-Public Use
  Company Number: US-AMGEN-USASP2014007466

PATIENT
  Age: 33 Year
  Sex: Female

DRUGS (1)
  1. ENBREL [Suspect]
     Indication: RHEUMATOID ARTHRITIS
     Dosage: 50 MG, QWK
     Route: 058
     Dates: start: 201211

REACTIONS (7)
  - Pneumonia [Unknown]
  - Night sweats [Unknown]
  - Cough [Unknown]
  - Pyrexia [Unknown]
  - White blood cell count decreased [Unknown]
  - Anaemia [Unknown]
  - Lymphadenopathy [Unknown]
